FAERS Safety Report 7158980-X (Version None)
Quarter: 2010Q4

REPORT INFORMATION
  Report Type: 
  Country: None (occurrence: None)
  Receive Date: 20101214
  Receipt Date: 20101201
  Transmission Date: 20110411
  Serious: Yes (Hospitalization, Other)
  Sender: FDA-Public Use
  Company Number: CA-ELI_LILLY_AND_COMPANY-CA201012000203

PATIENT
  Sex: Male

DRUGS (15)
  1. ZYPREXA [Suspect]
     Indication: SCHIZOPHRENIA, PARANOID TYPE
     Dosage: 15 MG, DAILY (1/D)
     Route: 048
     Dates: start: 19970930
  2. ZYPREXA ZYDIS [Suspect]
     Indication: SCHIZOPHRENIA, PARANOID TYPE
     Dosage: 15 MG, DAILY (1/D)
     Route: 048
  3. CLOPIXOL DEPOT [Concomitant]
     Indication: SCHIZOPHRENIA
     Dosage: 150 MG, EVERY 2 WEEKS
     Route: 030
  4. COGENTIN [Concomitant]
     Indication: SCHIZOPHRENIA
     Dosage: 2 MG, AS NEEDED
     Route: 048
  5. COGENTIN [Concomitant]
     Dosage: 2 MG, AS NEEDED
     Route: 030
  6. ATIVAN [Concomitant]
     Dosage: 2 MG, AS NEEDED
     Route: 030
  7. ATIVAN [Concomitant]
     Dosage: 2 MG, AS NEEDED
     Route: 048
  8. LOXAPINE [Concomitant]
     Dosage: 25 MG, AS NEEDED
     Route: 030
  9. NEXIUM [Concomitant]
     Indication: PEPTIC ULCER
     Dosage: UNK, UNKNOWN
     Route: 065
  10. CLOZAPINE [Concomitant]
     Dosage: 100 MG, UNKNOWN
     Route: 065
  11. RISPERDAL [Concomitant]
     Dosage: UNK, UNKNOWN
     Route: 065
  12. AMOBARBITAL SODIUM [Concomitant]
     Indication: AGITATION
     Dosage: UNK, AS NEEDED
     Route: 048
  13. AMOBARBITAL SODIUM [Concomitant]
     Dosage: UNK, AS NEEDED
     Route: 030
  14. NICOTINE [Concomitant]
  15. NICORETTE [Concomitant]
     Indication: SMOKING CESSATION THERAPY
     Dosage: 2 MG, AS NEEDED

REACTIONS (8)
  - ANAEMIA [None]
  - CATARACT [None]
  - DIABETIC KETOACIDOSIS [None]
  - HEPATIC STEATOSIS [None]
  - HEPATITIS C VIRUS TEST POSITIVE [None]
  - TYPE 1 DIABETES MELLITUS [None]
  - VISION BLURRED [None]
  - WHITE BLOOD CELL COUNT DECREASED [None]
